FAERS Safety Report 9568432 (Version 1)
Quarter: 2013Q3

REPORT INFORMATION
  Report Type: Spontaneous
  Country: US (occurrence: US)
  Receive Date: 20130930
  Receipt Date: 20130930
  Transmission Date: 20140515
  Serious: No
  Sender: FDA-Public Use
  Company Number: US-AMGEN-USASP2013046117

PATIENT
  Age: 52 Year
  Sex: Female
  Weight: 126.8 kg

DRUGS (9)
  1. ENBREL [Suspect]
     Indication: PRODUCT USED FOR UNKNOWN INDICATION
     Dosage: 50 MG, QWK
     Route: 058
  2. METHOTREXATE [Concomitant]
     Dosage: 2.5 MG, UNK
  3. LYRICA [Concomitant]
     Dosage: 75 MG, UNK
  4. AMOXICILLIN [Concomitant]
     Dosage: 500 MG, UNK
  5. AMITRIPTYLIN [Concomitant]
     Dosage: 150 MG, UNK
  6. IBU [Concomitant]
     Dosage: 600 MG, UNK
  7. ALEVE [Concomitant]
     Dosage: 220 MG, UNK
  8. FOLIC ACID [Concomitant]
     Dosage: 5 MG, UNK
  9. AZITHROMYCIN [Concomitant]
     Dosage: 1 G, PAK

REACTIONS (1)
  - Sinusitis [Unknown]
